FAERS Safety Report 7761843-X (Version None)
Quarter: 2011Q3

REPORT INFORMATION
  Report Type: 
  Country: None (occurrence: None)
  Receive Date: 20110920
  Receipt Date: 20110908
  Transmission Date: 20111222
  Serious: Yes (Death, Hospitalization, Other)
  Sender: FDA-Public Use
  Company Number: US-AMGEN-USASP2011018255

PATIENT
  Age: 82 Year
  Sex: Female
  Weight: 81.179 kg

DRUGS (3)
  1. SPIRONOLACTONE [Concomitant]
     Dosage: UNK
  2. LASIX [Concomitant]
     Dosage: 20 MG, UNK
  3. NPLATE [Suspect]
     Indication: IDIOPATHIC THROMBOCYTOPENIC PURPURA
     Dosage: UNK
     Dates: start: 20101013

REACTIONS (9)
  - MALNUTRITION [None]
  - HYPOALBUMINAEMIA [None]
  - DYSPNOEA [None]
  - HAEMOGLOBIN DECREASED [None]
  - HOSPITALISATION [None]
  - DEATH [None]
  - GASTROINTESTINAL HAEMORRHAGE [None]
  - CONTUSION [None]
  - OEDEMA PERIPHERAL [None]
